FAERS Safety Report 11908445 (Version 1)
Quarter: 2016Q1

REPORT INFORMATION
  Report Type: Report from Study
  Country: CA (occurrence: CA)
  Receive Date: 20160111
  Receipt Date: 20160111
  Transmission Date: 20160526
  Serious: Yes (Other)
  Sender: FDA-Public Use
  Company Number: CA-ABBVIE-16K-028-1531777-00

PATIENT
  Sex: Female

DRUGS (2)
  1. FERAMAX [Concomitant]
     Active Substance: IRON\POLYSACCHARIDES
     Indication: IRON DEFICIENCY
     Route: 048
     Dates: start: 2015
  2. HUMIRA [Suspect]
     Active Substance: ADALIMUMAB
     Indication: ANKYLOSING SPONDYLITIS
     Route: 058
     Dates: start: 20101229

REACTIONS (3)
  - Intestinal obstruction [Recovered/Resolved]
  - Iron deficiency [Not Recovered/Not Resolved]
  - Post procedural complication [Not Recovered/Not Resolved]

NARRATIVE: CASE EVENT DATE: 2015
